FAERS Safety Report 14453261 (Version 2)
Quarter: 2018Q1

REPORT INFORMATION
  Report Type: Spontaneous
  Country: JP (occurrence: JP)
  Receive Date: 20180129
  Receipt Date: 20180217
  Transmission Date: 20180509
  Serious: Yes (Other)
  Sender: FDA-Public Use
  Company Number: JP-AMGEN-JPNSP2018012715

PATIENT
  Age: 8 Decade
  Sex: Female

DRUGS (1)
  1. PANITUMUMAB [Suspect]
     Active Substance: PANITUMUMAB
     Indication: COLON CANCER
     Dosage: 6 MG/KG, Q2WEEKS
     Route: 041
     Dates: start: 201711

REACTIONS (1)
  - Gastroenteritis staphylococcal [Not Recovered/Not Resolved]

NARRATIVE: CASE EVENT DATE: 201801
